FAERS Safety Report 19292385 (Version 1)
Quarter: 2021Q2

REPORT INFORMATION
  Report Type: Other
  Country: CN (occurrence: CN)
  Receive Date: 20210524
  Receipt Date: 20210524
  Transmission Date: 20210717
  Serious: Yes (Life-Threatening)
  Sender: FDA-Public Use
  Company Number: CN-ROCHE-2834108

PATIENT
  Age: 60 Year
  Sex: Female
  Weight: 48 kg

DRUGS (2)
  1. AVASTIN [Suspect]
     Active Substance: BEVACIZUMAB
     Indication: NON-SMALL CELL LUNG CANCER
     Dosage: 100MG
     Route: 041
     Dates: start: 20170327
  2. AVASTIN [Suspect]
     Active Substance: BEVACIZUMAB
     Route: 041
     Dates: start: 20180719

REACTIONS (3)
  - Coma [Not Recovered/Not Resolved]
  - Condition aggravated [Not Recovered/Not Resolved]
  - Critical illness [Not Recovered/Not Resolved]

NARRATIVE: CASE EVENT DATE: 20210519
